FAERS Safety Report 4554888-4 (Version None)
Quarter: 2004Q4

REPORT INFORMATION
  Report Type: 
  Country: None (occurrence: None)
  Receive Date: 20041222
  Receipt Date: 20040827
  Transmission Date: 20050328
  Serious: Yes (Hospitalization)
  Sender: FDA-Public Use
  Company Number: 208718

PATIENT
  Age: 51 Year
  Sex: Female

DRUGS (5)
  1. AVASTIN [Suspect]
     Indication: COLORECTAL CANCER METASTATIC
     Dosage: INTRAVENOUS
     Route: 042
  2. FLUOROURACIL [Concomitant]
  3. LEUCOVORIN CALCIUM [Concomitant]
  4. IRINOTECAN (IRINOTECAN HYDROCHLORIDE) [Concomitant]
  5. OXALIPLATIN (OXALIPLATIN) [Concomitant]

REACTIONS (1)
  - HAEMORRHOIDAL HAEMORRHAGE [None]
